FAERS Safety Report 4540664-5 (Version None)
Quarter: 2004Q4

REPORT INFORMATION
  Report Type: 
  Country: None (occurrence: None)
  Receive Date: 20041229
  Receipt Date: 20041222
  Transmission Date: 20050328
  Serious: Yes (Hospitalization)
  Sender: FDA-Public Use
  Company Number: TH-BRISTOL-MYERS SQUIBB COMPANY-12803276

PATIENT
  Age: 87 Year
  Sex: Female

DRUGS (10)
  1. GATIFLOXACIN [Suspect]
     Indication: PNEUMONIA
  2. GLYBURIDE [Concomitant]
  3. ASPIRIN [Concomitant]
  4. TRIMETAZIDINE [Concomitant]
  5. DEXTROMETHORPHAN HYDROBROMIDE [Concomitant]
  6. CEFACLOR [Concomitant]
  7. REPAGLINIDE [Concomitant]
  8. VOGLIBOSE [Concomitant]
  9. CIPROFLOXACIN [Concomitant]
     Indication: PNEUMONIA
     Route: 048
  10. NPH INSULIN [Concomitant]
     Dosage: INITIALLY TAKING 10 UNITS DAILY THEN INCREASED TO 8 UNITS TWICE DAILY.

REACTIONS (1)
  - HYPOGLYCAEMIA [None]
